FAERS Safety Report 9268509 (Version 2)
Quarter: 2013Q2

REPORT INFORMATION
  Report Type: Spontaneous
  Country: CA (occurrence: CA)
  Receive Date: 20130502
  Receipt Date: 20130626
  Transmission Date: 20140414
  Serious: Yes (Other)
  Sender: FDA-Public Use
  Company Number: CHPA2013CA007353

PATIENT
  Age: 64 Year
  Sex: Male

DRUGS (6)
  1. HABITROL [Suspect]
     Indication: SMOKING CESSATION THERAPY
     Dosage: 21 MG, QD
     Route: 062
     Dates: start: 2012
  2. LITHIUM [Concomitant]
     Indication: DEPRESSION
     Dosage: 900 MG, QD
     Dates: start: 1991
  3. LITHIUM [Concomitant]
     Indication: BIPOLAR DISORDER
  4. RISPERIDONE [Concomitant]
     Indication: BIPOLAR DISORDER
     Dosage: 1.5 MG, QD
     Dates: start: 1991
  5. ZOPICLONE [Concomitant]
     Indication: INSOMNIA
     Dosage: 7.5 MG, QHS
     Dates: start: 1991
  6. INTERFERON [Concomitant]
     Indication: HEPATITIS C
     Dates: start: 2012, end: 2013

REACTIONS (4)
  - Pleural effusion [Not Recovered/Not Resolved]
  - Dyspnoea [Unknown]
  - Overdose [Unknown]
  - Treatment noncompliance [Unknown]
